FAERS Safety Report 25712477 (Version 1)
Quarter: 2025Q3

REPORT INFORMATION
  Report Type: Report from Study
  Country: ZA (occurrence: ZA)
  Receive Date: 20250821
  Receipt Date: 20250821
  Transmission Date: 20251021
  Serious: Yes (Hospitalization)
  Sender: ALEXION PHARMACEUTICALS
  Company Number: ZA-AstraZeneca-CH-00934438A

PATIENT
  Age: 77 Year
  Sex: Female

DRUGS (8)
  1. BUDESONIDE\FORMOTEROL FUMARATE DIHYDRATE [Suspect]
     Active Substance: BUDESONIDE\FORMOTEROL FUMARATE DIHYDRATE
  2. LOSARTAN POTASSIUM [Concomitant]
     Active Substance: LOSARTAN POTASSIUM
     Indication: Hypertension
  3. Spiractin [Concomitant]
     Indication: Hypertension
  4. Spiractin [Concomitant]
     Indication: Oedema
  5. Spiractin [Concomitant]
     Indication: Cardiac failure
  6. Spiractin [Concomitant]
     Indication: Hepatic cirrhosis
  7. Spiractin [Concomitant]
     Indication: Renal impairment
  8. Lipogen [Concomitant]
     Indication: Blood cholesterol

REACTIONS (2)
  - Cardiac disorder [Unknown]
  - Pulmonary oedema [Unknown]
